FAERS Safety Report 6692764-1 (Version None)
Quarter: 2010Q2

REPORT INFORMATION
  Report Type: 
  Country: None (occurrence: None)
  Receive Date: 20100422
  Receipt Date: 20100419
  Transmission Date: 20101027
  Serious: Yes (Death, Other)
  Sender: FDA-Public Use
  Company Number: PHHO2010US05670

PATIENT
  Sex: Female
  Weight: 65.3 kg

DRUGS (10)
  1. ZOLEDRONATE T29581+SOLINJ+BM [Suspect]
     Indication: METASTASES TO BONE
     Dosage: 3 MG, UNK
     Route: 042
     Dates: start: 20090527, end: 20100209
  2. CALCIUM [Concomitant]
  3. VITAMIN D [Concomitant]
  4. AMIODARONE [Concomitant]
  5. LOPRESSOR [Concomitant]
  6. LASIX [Concomitant]
  7. ALDACTONE [Concomitant]
  8. CHEMOTHERAPEUTICS NOS [Concomitant]
  9. PROCRIT [Concomitant]
  10. PROCHLORPERAZINE [Concomitant]

REACTIONS (26)
  - ABDOMINAL DISCOMFORT [None]
  - ABDOMINAL DISTENSION [None]
  - ABDOMINAL PAIN [None]
  - ABDOMINAL TENDERNESS [None]
  - ASTHENIA [None]
  - BREAST CANCER METASTATIC [None]
  - CARDIAC MURMUR [None]
  - CHILLS [None]
  - DECREASED APPETITE [None]
  - DEHYDRATION [None]
  - FATIGUE [None]
  - HYPERHIDROSIS [None]
  - HYPOPHAGIA [None]
  - MALAISE [None]
  - MALIGNANT ASCITES [None]
  - MALIGNANT NEOPLASM PROGRESSION [None]
  - METASTASES TO ABDOMINAL CAVITY [None]
  - NAUSEA [None]
  - PALLOR [None]
  - PARACENTESIS [None]
  - PERITONITIS [None]
  - PYREXIA [None]
  - SEPSIS [None]
  - TACHYCARDIA [None]
  - URINARY TRACT INFECTION [None]
  - WAIST CIRCUMFERENCE INCREASED [None]
